FAERS Safety Report 19140804 (Version 1)
Quarter: 2021Q2

REPORT INFORMATION
  Report Type: Spontaneous
  Country: KW (occurrence: KW)
  Receive Date: 20210415
  Receipt Date: 20210415
  Transmission Date: 20210717
  Serious: Yes (Other)
  Sender: FDA-Public Use
  Company Number: KW-LUPIN PHARMACEUTICALS INC.-2021-04777

PATIENT
  Age: 31 Year
  Sex: Female

DRUGS (4)
  1. ZINC ACETATE [Suspect]
     Active Substance: ZINC ACETATE
     Indication: MINERAL SUPPLEMENTATION
     Dosage: UNK?ONE LOZENGE EVERY 6?8 HOURS
     Route: 065
     Dates: start: 2020
  2. HYDROXYCHLOROQUINE [Suspect]
     Active Substance: HYDROXYCHLOROQUINE
     Indication: COVID-19
     Dosage: 400 MILLIGRAM, BID?ON DAY 1
     Route: 048
     Dates: start: 2020
  3. HYDROXYCHLOROQUINE [Suspect]
     Active Substance: HYDROXYCHLOROQUINE
     Dosage: 200 MILLIGRAM, BID?FROM DAY 2?DAY 5
     Route: 048
     Dates: start: 2020
  4. VITAMIN C [Suspect]
     Active Substance: ASCORBIC ACID
     Indication: VITAMIN SUPPLEMENTATION
     Dosage: 1000 MILLIGRAM, QD
     Route: 065
     Dates: start: 2020

REACTIONS (3)
  - Maternal exposure during pregnancy [Unknown]
  - Off label use [Unknown]
  - Abortion spontaneous [Unknown]

NARRATIVE: CASE EVENT DATE: 2020
